FAERS Safety Report 9941027 (Version 1)
Quarter: 2014Q1

REPORT INFORMATION
  Report Type: Spontaneous
  Country: US (occurrence: US)
  Receive Date: 20140303
  Receipt Date: 20140303
  Transmission Date: 20141002
  Serious: Yes (Other)
  Sender: FDA-Public Use
  Company Number: US-BRISTOL-MYERS SQUIBB COMPANY-20337622

PATIENT
  Sex: Female

DRUGS (2)
  1. GLUCOVANCE [Suspect]
  2. GLUCOPHAGE [Suspect]

REACTIONS (2)
  - Brain neoplasm [Unknown]
  - Blood glucose increased [Unknown]
